FAERS Safety Report 6713794-7 (Version None)
Quarter: 2010Q2

REPORT INFORMATION
  Report Type: 
  Country: None (occurrence: None)
  Receive Date: 20100506
  Receipt Date: 20100504
  Transmission Date: 20101027
  Serious: Yes (Life-Threatening, Hospitalization)
  Sender: FDA-Public Use
  Company Number: GXKR2010DE04947

PATIENT
  Sex: Female
  Weight: 62 kg

DRUGS (4)
  1. FOLINIC ACID (NGX) [Suspect]
     Dosage: 250 MG, UNK
     Route: 040
  2. OXALIPLATIN [Suspect]
     Indication: COLON CANCER METASTATIC
     Dosage: 140 MG, UNK
     Route: 040
  3. AVASTIN [Concomitant]
     Dosage: 300 MG, UNK
     Route: 040
  4. HEPARIN [Concomitant]
     Route: 042

REACTIONS (1)
  - THROMBOCYTOPENIA [None]
